FAERS Safety Report 6567148-7 (Version None)
Quarter: 2010Q1

REPORT INFORMATION
  Report Type: 
  Country: None (occurrence: None)
  Receive Date: 20100202
  Receipt Date: 20100125
  Transmission Date: 20100710
  Serious: Yes (Life-Threatening)
  Sender: FDA-Public Use
  Company Number: JP-GENENTECH-293121

PATIENT
  Sex: Male

DRUGS (5)
  1. RITUXAN [Suspect]
     Indication: LYMPHOMA
     Dosage: 600 MG, UNKNOWN
     Route: 042
     Dates: start: 20071026
  2. ENDOXAN [Suspect]
     Indication: LYMPHOMA
     Dosage: 1000 MG, UNK
     Route: 042
     Dates: start: 20071029, end: 20071029
  3. ADRIACIN [Suspect]
     Indication: LYMPHOMA
     Dosage: 60 MG, UNK
     Route: 042
     Dates: start: 20071029, end: 20071029
  4. ONCOVIN [Suspect]
     Indication: LYMPHOMA
     Dosage: 1.6 MG, UNK
     Route: 042
     Dates: start: 20071029, end: 20071029
  5. PREDNISOLONE [Concomitant]
     Indication: LYMPHOMA
     Dosage: UNK
     Route: 065

REACTIONS (1)
  - PERITONITIS [None]
